FAERS Safety Report 5838478-9 (Version None)
Quarter: 2008Q3

REPORT INFORMATION
  Report Type: 
  Country: None (occurrence: None)
  Receive Date: 20080806
  Receipt Date: 20080731
  Transmission Date: 20090109
  Serious: Yes (Death)
  Sender: FDA-Public Use
  Company Number: 163-21880-08071837

PATIENT
  Age: 84 Year
  Sex: Male

DRUGS (3)
  1. REVLIMID [Suspect]
     Indication: MULTIPLE MYELOMA
     Dosage: 10 MG, 1 IN 1 D, ORAL X21 DAYS EVERY 28 DAYS, ORAL
     Route: 048
     Dates: start: 20070913, end: 20071001
  2. REVLIMID [Suspect]
     Indication: MULTIPLE MYELOMA
     Dosage: 10 MG, 1 IN 1 D, ORAL X21 DAYS EVERY 28 DAYS, ORAL
     Route: 048
     Dates: start: 20071025, end: 20080101
  3. REVLIMID [Suspect]
     Indication: MULTIPLE MYELOMA
     Dosage: 10 MG, 1 IN 1 D, ORAL X21 DAYS EVERY 28 DAYS, ORAL
     Route: 048
     Dates: start: 20080321

REACTIONS (3)
  - ASTHENIA [None]
  - NEOPLASM MALIGNANT [None]
  - OEDEMA PERIPHERAL [None]
